FAERS Safety Report 8434634-4 (Version None)
Quarter: 2012Q2

REPORT INFORMATION
  Report Type: 
  Country: None (occurrence: None)
  Receive Date: 20120614
  Receipt Date: 20120602
  Transmission Date: 20120825
  Serious: Yes (Death, Hospitalization, Other)
  Sender: FDA-Public Use
  Company Number: US-PAR PHARMACEUTICAL, INC-2012SCPR004441

PATIENT

DRUGS (4)
  1. LIPID EMULSION [Suspect]
     Indication: SHOCK
     Dosage: BOLUS TWICE
     Route: 042
  2. DULOXETIME HYDROCHLORIDE [Suspect]
     Indication: PRODUCT USED FOR UNKNOWN INDICATION
     Dosage: UNK, UNKNOWN
     Route: 065
  3. VERAPAMIL [Suspect]
     Indication: PRODUCT USED FOR UNKNOWN INDICATION
     Dosage: UNK, UNKNOWN
     Route: 065
  4. LAMOTRIGINE [Suspect]
     Indication: PRODUCT USED FOR UNKNOWN INDICATION
     Dosage: UNK, UNKNOWN
     Route: 065

REACTIONS (6)
  - MULTIPLE DRUG OVERDOSE [None]
  - DEATH [None]
  - CARDIOTOXICITY [None]
  - SHOCK [None]
  - HYPERLIPIDAEMIA [None]
  - TOXICITY TO VARIOUS AGENTS [None]
